FAERS Safety Report 4352201-9 (Version None)
Quarter: 2004Q2

REPORT INFORMATION
  Report Type: 
  Country: None (occurrence: None)
  Receive Date: 20040428
  Receipt Date: 20040419
  Transmission Date: 20050107
  Serious: Yes (Hospitalization)
  Sender: FDA-Public Use
  Company Number: 2004210032FR

PATIENT
  Age: 79 Year
  Sex: Female

DRUGS (5)
  1. MEDROL [Suspect]
     Dosage: 100 MG, QD, ORAL
     Route: 048
     Dates: start: 20030515, end: 20030518
  2. TAXOTERE [Suspect]
     Indication: BREAST CANCER
     Dosage: 100 MG, QD, IV
     Route: 042
     Dates: start: 20030516, end: 20030516
  3. NITROGLYCERIN [Suspect]
     Indication: ANGINA PECTORIS
     Dosage: 10 MG, QD, TRANSDERMAL
     Route: 062
  4. DIFFU K [Concomitant]
  5. MAXILASE (AMYLASE) [Concomitant]

REACTIONS (3)
  - AMNESIA [None]
  - CONFUSIONAL STATE [None]
  - DIABETES MELLITUS INSULIN-DEPENDENT [None]
